FAERS Safety Report 5525757-8 (Version None)
Quarter: 2007Q4

REPORT INFORMATION
  Report Type: 
  Country: None (occurrence: None)
  Receive Date: 20071126
  Receipt Date: 20071113
  Transmission Date: 20080405
  Serious: Yes (Hospitalization)
  Sender: FDA-Public Use
  Company Number: FR-ROCHE-531666

PATIENT
  Age: 71 Year
  Sex: Male

DRUGS (7)
  1. RIVOTRIL [Suspect]
     Indication: DRUG USE FOR UNKNOWN INDICATION
     Dosage: PATIENT RECEIVED 1 FLASK OF CLONAZEPAM
     Route: 048
     Dates: start: 20070919, end: 20070919
  2. RIVOTRIL [Suspect]
     Route: 048
  3. STALEVO 100 [Suspect]
     Indication: DRUG USE FOR UNKNOWN INDICATION
     Route: 048
     Dates: end: 20070919
  4. COMTAN [Suspect]
     Indication: DRUG USE FOR UNKNOWN INDICATION
     Route: 048
     Dates: start: 20070919, end: 20070919
  5. CODEINE SUL TAB [Concomitant]
  6. EFFERALGAN [Concomitant]
  7. LACTULOSE [Concomitant]

REACTIONS (3)
  - CONFUSIONAL STATE [None]
  - NEUROLEPTIC MALIGNANT SYNDROME [None]
  - SOMNOLENCE [None]
